FAERS Safety Report 7698709-X (Version None)
Quarter: 2011Q3

REPORT INFORMATION
  Report Type: 
  Country: None (occurrence: None)
  Receive Date: 20110819
  Receipt Date: 20110815
  Transmission Date: 20111222
  Serious: Yes (Hospitalization, Other)
  Sender: FDA-Public Use
  Company Number: US-SANOFI-AVENTIS-2011SA052194

PATIENT
  Age: 32 Year
  Sex: Female
  Weight: 91 kg

DRUGS (4)
  1. PLAVIX [Suspect]
     Route: 048
     Dates: start: 20060101
  2. ZOFRAN [Concomitant]
  3. MORPHINE [Concomitant]
  4. PLAVIX [Suspect]
     Route: 048
     Dates: start: 20030101

REACTIONS (6)
  - SLEEP APNOEA SYNDROME [None]
  - HYPERSENSITIVITY [None]
  - VOCAL CORD DISORDER [None]
  - CHRONIC OBSTRUCTIVE PULMONARY DISEASE [None]
  - ANGINA PECTORIS [None]
  - COUGH [None]
